FAERS Safety Report 7972547-2 (Version None)
Quarter: 2011Q4

REPORT INFORMATION
  Report Type: 
  Country: None (occurrence: None)
  Receive Date: 20111213
  Receipt Date: 20111130
  Transmission Date: 20120403
  Serious: Yes (Other)
  Sender: FDA-Public Use
  Company Number: US-ELI_LILLY_AND_COMPANY-US201112000776

PATIENT
  Sex: Male

DRUGS (6)
  1. NITROGLYCERIN [Concomitant]
     Indication: CHEST PAIN
     Dosage: UNK, PRN
  2. LANTUS [Concomitant]
     Dosage: 43 U, EACH EVENING
  3. RANEXA [Concomitant]
     Indication: CHEST PAIN
     Dosage: 1000 MG, QD
  4. HUMALOG [Suspect]
     Indication: DIABETES MELLITUS
     Dosage: 39 U, TID
     Dates: start: 20090101
  5. JANUVIA [Concomitant]
     Dosage: 100 MG, UNKNOWN
  6. LANTUS [Concomitant]
     Dosage: 33 U, EACH MORNING

REACTIONS (4)
  - VISION BLURRED [None]
  - CHEST PAIN [None]
  - VISUAL IMPAIRMENT [None]
  - EYE HAEMORRHAGE [None]
